FAERS Safety Report 20289651 (Version 2)
Quarter: 2022Q1

REPORT INFORMATION
  Report Type: Spontaneous
  Country: US (occurrence: US)
  Receive Date: 20220104
  Receipt Date: 20220111
  Transmission Date: 20220424
  Serious: Yes (Death, Life-Threatening, Hospitalization, Other)
  Sender: FDA-Public Use
  Company Number: US-MLMSERVICE-20211217-3279735-1

PATIENT
  Age: 25 Year
  Sex: Male

DRUGS (6)
  1. PREDNISONE [Suspect]
     Active Substance: PREDNISONE
     Indication: Immunosuppressant drug therapy
     Dosage: LOW DOSE
     Route: 065
  2. VANCOMYCIN [Suspect]
     Active Substance: VANCOMYCIN
     Indication: Candida infection
     Dosage: UNK
     Route: 048
  3. MYCOPHENOLIC ACID [Suspect]
     Active Substance: MYCOPHENOLIC ACID
     Indication: Immunosuppressant drug therapy
     Dosage: UNK
     Route: 065
  4. TACROLIMUS [Suspect]
     Active Substance: TACROLIMUS
     Indication: Immunosuppressant drug therapy
     Dosage: UNK
     Route: 065
  5. CEFEPIME [Concomitant]
     Active Substance: CEFEPIME HYDROCHLORIDE
     Indication: Product used for unknown indication
     Dosage: UNK
     Route: 065
  6. MYCOPHENOLATE MOFETIL [Concomitant]
     Active Substance: MYCOPHENOLATE MOFETIL
     Indication: Product used for unknown indication
     Dosage: UNK
     Route: 065

REACTIONS (14)
  - Disseminated mucormycosis [Fatal]
  - Gastrointestinal mucormycosis [Fatal]
  - Corynebacterium infection [Unknown]
  - Mediastinitis [Unknown]
  - Pneumonia [Unknown]
  - Pneumoperitoneum [Unknown]
  - Lactic acidosis [Unknown]
  - Hypothermia [Unknown]
  - Gastrointestinal perforation [Unknown]
  - Pseudomonas infection [Unknown]
  - Candida infection [Unknown]
  - Postoperative thoracic procedure complication [Unknown]
  - Small intestinal obstruction [Unknown]
  - Arrhythmia [Unknown]
